FAERS Safety Report 9338514 (Version 1)
Quarter: 2013Q2

REPORT INFORMATION
  Report Type: Spontaneous
  Country: US (occurrence: US)
  Receive Date: 20130610
  Receipt Date: 20130610
  Transmission Date: 20140414
  Serious: No
  Sender: FDA-Public Use
  Company Number: US-PFIZER INC-2013173388

PATIENT
  Sex: Female

DRUGS (2)
  1. LYRICA [Suspect]
     Indication: NERVE INJURY
     Dosage: UNK
  2. LYRICA [Suspect]
     Indication: PAIN

REACTIONS (4)
  - Weight increased [Unknown]
  - Fluid retention [Unknown]
  - Drug ineffective [Unknown]
  - Euphoric mood [Unknown]
